FAERS Safety Report 5882029-X (Version None)
Quarter: 2008Q3

REPORT INFORMATION
  Report Type: 
  Country: None (occurrence: None)
  Receive Date: 20080912
  Receipt Date: 20080723
  Transmission Date: 20090109
  Serious: No
  Sender: FDA-Public Use
  Company Number: US-ABBOTT-08P-163-0464989-00

PATIENT

DRUGS (4)
  1. HUMIRA [Suspect]
     Indication: PSORIASIS
     Route: 058
     Dates: start: 20080201, end: 20080201
  2. HUMIRA [Suspect]
     Route: 058
     Dates: start: 20080301, end: 20080710
  3. LEVOTHYROXINE SODIUM [Concomitant]
     Indication: HYPOTHYROIDISM
  4. METHOTREXATE [Concomitant]
     Indication: PSORIASIS

REACTIONS (6)
  - FATIGUE [None]
  - MUSCULAR WEAKNESS [None]
  - OEDEMA PERIPHERAL [None]
  - PARAESTHESIA [None]
  - PRURITUS GENERALISED [None]
  - RASH GENERALISED [None]
